FAERS Safety Report 8618693-1 (Version None)
Quarter: 2012Q3

REPORT INFORMATION
  Report Type: 
  Country: None (occurrence: None)
  Receive Date: 20120824
  Receipt Date: 20120814
  Transmission Date: 20120928
  Serious: Yes (Hospitalization, Other)
  Sender: FDA-Public Use
  Company Number: CA-JNJFOC-20120806914

PATIENT
  Sex: Female
  Weight: 60 kg

DRUGS (6)
  1. CALCIUM [Concomitant]
     Route: 065
  2. REMICADE [Suspect]
     Indication: COLITIS ULCERATIVE
     Route: 042
  3. MULTI-VITAMINS [Concomitant]
     Dosage: 1 TABLET DAILY
     Route: 048
  4. REMICADE [Suspect]
     Route: 042
     Dates: start: 20120710
  5. PREDNISONE TAB [Concomitant]
     Route: 048
  6. VITAMIN D [Concomitant]
     Dosage: 1000 UNITS
     Route: 048

REACTIONS (3)
  - COLITIS ULCERATIVE [None]
  - STRIDOR [None]
  - THROAT TIGHTNESS [None]
